FAERS Safety Report 5332044-X (Version None)
Quarter: 2007Q2

REPORT INFORMATION
  Report Type: 
  Country: None (occurrence: None)
  Receive Date: 20070523
  Receipt Date: 20070514
  Transmission Date: 20071010
  Serious: Yes (Hospitalization, Other)
  Sender: FDA-Public Use
  Company Number: PHBS2006JP17228

PATIENT
  Age: 53 Year
  Sex: Female
  Weight: 60 kg

DRUGS (10)
  1. AREDIA [Suspect]
     Indication: METASTASES TO BONE
     Dosage: 90 MG, UNK
     Route: 042
     Dates: start: 20050325, end: 20060410
  2. TAXOL [Concomitant]
     Dosage: 90 MG/D
     Route: 042
     Dates: start: 20050322
  3. ARIMIDEX [Concomitant]
     Dosage: 1 MG/D
     Route: 048
     Dates: start: 20050322
  4. NAVELBINE [Concomitant]
     Dosage: 40 MG/D
     Route: 042
     Dates: start: 20060828
  5. ZOMETA [Suspect]
     Indication: METASTASES TO BONE
     Dosage: 4 MG, UNK
     Route: 042
     Dates: start: 20060731, end: 20060828
  6. ZOMETA [Suspect]
     Dates: start: 20061016
  7. RADIOTHERAPY [Concomitant]
     Indication: METASTASES TO BONE
     Route: 065
     Dates: start: 20050301
  8. CHEMOTHERAPEUTICS,OTHER [Concomitant]
     Indication: METASTASES TO BONE
     Route: 065
     Dates: start: 20050301
  9. FARMORUBICIN [Concomitant]
     Route: 042
     Dates: start: 20051017, end: 20060703
  10. ENDOXAN [Concomitant]
     Dates: start: 20051017, end: 20060703

REACTIONS (20)
  - BONE DISORDER [None]
  - C-REACTIVE PROTEIN INCREASED [None]
  - COUGH [None]
  - DYSPNOEA [None]
  - GINGIVAL ABSCESS [None]
  - GINGIVAL DISORDER [None]
  - GINGIVAL PAIN [None]
  - GINGIVAL SWELLING [None]
  - GINGIVITIS [None]
  - INCISIONAL DRAINAGE [None]
  - NEUTROPHIL COUNT DECREASED [None]
  - OSTEONECROSIS [None]
  - PHARYNGOLARYNGEAL PAIN [None]
  - PRIMARY SEQUESTRUM [None]
  - PURULENT DISCHARGE [None]
  - PYREXIA [None]
  - SEQUESTRECTOMY [None]
  - SWELLING [None]
  - TUMOUR ULCERATION [None]
  - WHITE BLOOD CELL COUNT DECREASED [None]
